FAERS Safety Report 4525852-6 (Version None)
Quarter: 2004Q4

REPORT INFORMATION
  Report Type: 
  Country: None (occurrence: None)
  Receive Date: 20041124
  Receipt Date: 20040114
  Transmission Date: 20050328
  Serious: Yes (Hospitalization, Other)
  Sender: FDA-Public Use
  Company Number: 2003122962

PATIENT
  Age: 69 Year
  Sex: Female

DRUGS (11)
  1. TIKOSYN [Suspect]
     Indication: ATRIAL FIBRILLATION
     Dosage: 500 MCG (BID), ORAL
     Route: 048
     Dates: start: 20020610
  2. VALDECOXIB [Concomitant]
  3. METOPROLOL SUCCINATE [Concomitant]
  4. WARFARIN SODIUM [Concomitant]
  5. FUROSEMIDE [Concomitant]
  6. BECOSYM FORTE (PYRIDOXINE HYDROCHLORIDE, THIAMINE HYDROCHLORIDE, RIBOF [Concomitant]
  7. MAGNESIUM (MAGNESIUM) [Concomitant]
  8. POTASSIUM (POTASSIUM) [Concomitant]
  9. CALCIUM (CALCIUM) [Concomitant]
  10. METOPROLOL TARTRATE [Concomitant]
  11. POTASSIUM CHLORIDE [Concomitant]

REACTIONS (12)
  - ALOPECIA [None]
  - ATRIAL FIBRILLATION [None]
  - BLOOD MAGNESIUM DECREASED [None]
  - BLOOD POTASSIUM DECREASED [None]
  - DIZZINESS [None]
  - DRUG INEFFECTIVE [None]
  - FEELING ABNORMAL [None]
  - HAIR TEXTURE ABNORMAL [None]
  - HYPOTENSION [None]
  - PALPITATIONS [None]
  - VOMITING [None]
  - WEIGHT INCREASED [None]
